FAERS Safety Report 18031486 (Version 8)
Quarter: 2022Q1

REPORT INFORMATION
  Report Type: Spontaneous
  Country: US (occurrence: US)
  Receive Date: 20200716
  Receipt Date: 20220110
  Transmission Date: 20220424
  Serious: Yes (Hospitalization, Other)
  Sender: FDA-Public Use
  Company Number: US-PFIZER INC-2020270653

PATIENT
  Age: 74 Year
  Sex: Female
  Weight: 56.25 kg

DRUGS (4)
  1. PREMPRO [Suspect]
     Active Substance: ESTROGENS, CONJUGATED\MEDROXYPROGESTERONE ACETATE
     Indication: Hot flush
     Dosage: 1 DF (0.625-2.5MG LITTLE PINK )
  2. PREMPRO [Suspect]
     Active Substance: ESTROGENS, CONJUGATED\MEDROXYPROGESTERONE ACETATE
     Indication: Sleep disorder
     Dosage: UNK, DAILY (0.625/2.5MG TABLET)
     Route: 048
  3. PREMPRO [Suspect]
     Active Substance: ESTROGENS, CONJUGATED\MEDROXYPROGESTERONE ACETATE
     Indication: Anxiety
  4. PREMPRO [Suspect]
     Active Substance: ESTROGENS, CONJUGATED\MEDROXYPROGESTERONE ACETATE
     Indication: Hyperhidrosis

REACTIONS (12)
  - Tooth infection [Recovered/Resolved]
  - Body height decreased [Unknown]
  - Fatigue [Unknown]
  - Hormone level abnormal [Recovered/Resolved]
  - Thyroid disorder [Recovered/Resolved]
  - Hyperhidrosis [Unknown]
  - Malaise [Unknown]
  - Somnolence [Unknown]
  - Weight increased [Unknown]
  - Drug ineffective [Unknown]
  - Product dispensing error [Unknown]
  - Therapeutic response unexpected [Unknown]
